FAERS Safety Report 9813525 (Version 2)
Quarter: 2014Q1

REPORT INFORMATION
  Report Type: Spontaneous
  Country: US (occurrence: US)
  Receive Date: 20140113
  Receipt Date: 20140210
  Transmission Date: 20141002
  Serious: Yes (Other)
  Sender: FDA-Public Use
  Company Number: US-PFIZER INC-2014008552

PATIENT
  Age: 60 Year
  Sex: Male

DRUGS (22)
  1. XELJANZ [Suspect]
     Indication: RHEUMATOID ARTHRITIS
     Dosage: 5 MG, 2X/DAY (5MG 1 PILL)
     Route: 048
  2. CARDIZEM [Concomitant]
     Dosage: UNK
  3. B12-VITAMIN [Concomitant]
     Dosage: UNK
  4. CYCLOBENZAPRINE [Concomitant]
     Dosage: UNK
  5. CYMBALTA [Concomitant]
     Dosage: UNK
  6. EFFIENT [Concomitant]
     Dosage: UNK
  7. FOLIC ACID [Concomitant]
     Dosage: UNK
  8. GUAIFENESIN/HYDROCODONE BITARTRATE [Concomitant]
     Dosage: UNK
  9. HYZAAR [Concomitant]
     Dosage: UNK
  10. JANUVIA [Concomitant]
     Dosage: UNK
  11. LOSARTAN [Concomitant]
     Dosage: UNK
  12. LYRICA [Concomitant]
     Dosage: UNK
  13. METHYLPREDNISOLONE [Concomitant]
     Dosage: UNK
  14. MORPHINE SULFATE [Concomitant]
     Dosage: UNK
  15. NABUMETONE [Concomitant]
     Dosage: UNK
  16. OMEPRAZOLE [Concomitant]
     Dosage: UNK
  17. SYNTHROID [Concomitant]
     Dosage: UNK
  18. SIMVASTATIN [Concomitant]
     Dosage: UNK
  19. TRAMADOL [Concomitant]
     Dosage: UNK
  20. VYTORIN [Concomitant]
     Dosage: UNK
  21. CIMZIA [Concomitant]
     Dosage: UNK
  22. KRISTALOSE [Concomitant]
     Dosage: UNK

REACTIONS (3)
  - Rheumatoid arthritis [Unknown]
  - Pain [Unknown]
  - Musculoskeletal stiffness [Unknown]
